FAERS Safety Report 9417804 (Version 1)
Quarter: 2013Q3

REPORT INFORMATION
  Report Type: Report from Study
  Country: LV (occurrence: LV)
  Receive Date: 20130724
  Receipt Date: 20130724
  Transmission Date: 20140515
  Serious: Yes (Death)
  Sender: FDA-Public Use
  Company Number: LV-GLAXOSMITHKLINE-B0910335A

PATIENT
  Age: 48 Year
  Sex: Male
  Weight: 99 kg

DRUGS (7)
  1. SERETIDE [Suspect]
     Indication: CHRONIC OBSTRUCTIVE PULMONARY DISEASE
     Route: 065
     Dates: start: 20130104, end: 20130317
  2. BLINDED TRIAL MEDICATION [Suspect]
     Indication: CARDIAC FAILURE
     Route: 048
     Dates: start: 20130214, end: 20130313
  3. SPIRIVA [Suspect]
     Indication: CHRONIC OBSTRUCTIVE PULMONARY DISEASE
     Route: 065
     Dates: start: 20130104, end: 20130317
  4. TORASEMIDE [Concomitant]
     Dates: start: 20130104, end: 20130317
  5. ASPIRIN [Concomitant]
     Dates: start: 20130104, end: 20130317
  6. ACC [Concomitant]
     Dates: start: 20130104, end: 20130317
  7. TEOTARD [Concomitant]
     Dates: start: 20130104, end: 20130317

REACTIONS (1)
  - Cardiac failure acute [Fatal]
